FAERS Safety Report 6139424-3 (Version None)
Quarter: 2009Q2

REPORT INFORMATION
  Report Type: 
  Country: None (occurrence: None)
  Receive Date: 20090401
  Receipt Date: 20090326
  Transmission Date: 20091009
  Serious: Yes (Other)
  Sender: FDA-Public Use
  Company Number: US-WYE-H08729309

PATIENT
  Sex: Female

DRUGS (1)
  1. ADVIL [Suspect]
     Indication: SCIATICA
     Route: 048
     Dates: start: 20080101, end: 20090301

REACTIONS (2)
  - PANCYTOPENIA [None]
  - SHIFT TO THE LEFT [None]
